FAERS Safety Report 15968784 (Version 1)
Quarter: 2019Q1

REPORT INFORMATION
  Report Type: Spontaneous
  Country: GB (occurrence: GB)
  Receive Date: 20190215
  Receipt Date: 20190215
  Transmission Date: 20190418
  Serious: Yes (Other)
  Sender: FDA-Public Use
  Company Number: GB-009507513-1902GBR005036

PATIENT
  Age: 22 Year
  Sex: Male
  Weight: 65 kg

DRUGS (1)
  1. FINASTERIDE. [Suspect]
     Active Substance: FINASTERIDE
     Indication: ALOPECIA
     Dosage: 1 DOSAGE FORM, QD
     Route: 048
     Dates: start: 20180428

REACTIONS (1)
  - Premature ejaculation [Not Recovered/Not Resolved]

NARRATIVE: CASE EVENT DATE: 20180628
